FAERS Safety Report 8030871-1 (Version None)
Quarter: 2012Q1

REPORT INFORMATION
  Report Type: 
  Country: None (occurrence: None)
  Receive Date: 20120109
  Receipt Date: 20120102
  Transmission Date: 20120608
  Serious: Yes (Hospitalization)
  Sender: FDA-Public Use
  Company Number: FR-PFIZER INC-2012000096

PATIENT
  Age: 45 Year
  Sex: Male

DRUGS (3)
  1. COLTRAMYL [Concomitant]
     Dosage: UNK
     Dates: start: 20111127, end: 20111201
  2. FUCIDINE CAP [Suspect]
     Indication: SEPTIC ARTHRITIS STAPHYLOCOCCAL
     Dosage: UNK
     Dates: start: 20111111, end: 20111206
  3. CLINDAMYCIN HCL [Suspect]
     Indication: SEPTIC ARTHRITIS STAPHYLOCOCCAL
     Dosage: UNK
     Dates: start: 20111103, end: 20111206

REACTIONS (1)
  - TOXIC SKIN ERUPTION [None]
